FAERS Safety Report 5894655-2 (Version None)
Quarter: 2008Q3

REPORT INFORMATION
  Report Type: 
  Country: None (occurrence: None)
  Receive Date: 20080924
  Receipt Date: 20080912
  Transmission Date: 20090109
  Serious: Yes (Hospitalization, Other)
  Sender: FDA-Public Use
  Company Number: US-BAYER-01/03533-USE

PATIENT
  Age: 37 Year
  Sex: Female
  Weight: 52 kg

DRUGS (8)
  1. BETASERON [Suspect]
     Indication: RELAPSING-REMITTING MULTIPLE SCLEROSIS
     Dosage: TOTAL DAILY DOSE: 8 MIU
     Route: 058
     Dates: start: 20010322
  2. CELEXA [Concomitant]
     Indication: DEPRESSION
     Route: 048
     Dates: start: 20001201
  3. PROVIGIL [Concomitant]
     Indication: FATIGUE
     Route: 048
     Dates: start: 20010501
  4. XANAX [Concomitant]
     Indication: ANXIETY
     Route: 048
     Dates: start: 19950101
  5. PEPCID [Concomitant]
     Indication: DYSPEPSIA
     Route: 048
  6. AMBIEN [Concomitant]
     Route: 048
  7. ATARAX [Concomitant]
     Route: 048
  8. TYLENOL (CAPLET) [Concomitant]
     Indication: HEADACHE
     Route: 048

REACTIONS (2)
  - GRAND MAL CONVULSION [None]
  - HEADACHE [None]
